FAERS Safety Report 8010773-7 (Version None)
Quarter: 2011Q4

REPORT INFORMATION
  Report Type: 
  Country: None (occurrence: None)
  Receive Date: 20111228
  Receipt Date: 20111219
  Transmission Date: 20120403
  Serious: Yes (Other)
  Sender: FDA-Public Use
  Company Number: US-SANOFI-AVENTIS-2011SA079275

PATIENT
  Age: 69 Year
  Sex: Female

DRUGS (13)
  1. L-LYSINE [Concomitant]
  2. WELCHOL [Concomitant]
  3. BUSPAR [Concomitant]
  4. OXYCODONE HCL [Concomitant]
  5. OXYCONTIN [Concomitant]
     Indication: PAIN
  6. DETROL [Concomitant]
  7. WARFARIN SODIUM [Concomitant]
  8. KLONOPIN [Concomitant]
  9. POTASSIUM [Concomitant]
  10. LACTULOSE [Concomitant]
  11. METHOCARBAMOL [Concomitant]
  12. ZOLPIDEM TARTRATE [Suspect]
     Indication: INSOMNIA
     Route: 048
     Dates: start: 20110601
  13. PREDNISONE TAB [Concomitant]
     Indication: ASTHMA

REACTIONS (18)
  - VISION BLURRED [None]
  - HERPES VIRUS INFECTION [None]
  - GAIT DISTURBANCE [None]
  - ASTHENIA [None]
  - MACULAR DEGENERATION [None]
  - COORDINATION ABNORMAL [None]
  - HEADACHE [None]
  - MUSCLE SPASMS [None]
  - MYALGIA [None]
  - FEELING ABNORMAL [None]
  - ANXIETY [None]
  - EYE PAIN [None]
  - APHASIA [None]
  - DEPRESSION [None]
  - INSOMNIA [None]
  - NIGHTMARE [None]
  - FATIGUE [None]
  - FLATULENCE [None]
